FAERS Safety Report 18049286 (Version 2)
Quarter: 2025Q2

REPORT INFORMATION
  Report Type: Report from Study
  Country: US (occurrence: US)
  Receive Date: 20200721
  Receipt Date: 20250619
  Transmission Date: 20250717
  Serious: Yes (Death)
  Sender: AUROBINDO
  Company Number: US-MYLANLABS-2020M1065555

PATIENT
  Age: 50 Year

DRUGS (14)
  1. METHOTREXATE [Interacting]
     Active Substance: METHOTREXATE
     Indication: Neoplasm malignant
     Route: 042
  2. METHOTREXATE [Interacting]
     Active Substance: METHOTREXATE
     Indication: Prophylaxis
     Route: 042
  3. METHOTREXATE [Interacting]
     Active Substance: METHOTREXATE
     Route: 037
  4. DEXAMETHASONE [Suspect]
     Active Substance: DEXAMETHASONE
     Indication: Neoplasm malignant
     Dosage: 40 MILLIGRAM, QD; ON DAYS 1-4 AND
     Route: 065
  5. CYCLOPHOSPHAMIDE [Suspect]
     Active Substance: CYCLOPHOSPHAMIDE
     Indication: Neoplasm malignant
     Dosage: 300 MILLIGRAM/SQ. METER, BID,OVER 3 H EVERY 12 H FOR SIX DOSES...
     Route: 042
  6. VINCRISTINE [Suspect]
     Active Substance: VINCRISTINE
     Indication: Neoplasm malignant
     Route: 042
  7. OFATUMUMAB [Suspect]
     Active Substance: OFATUMUMAB
     Indication: Neoplasm malignant
     Route: 042
  8. OFATUMUMAB [Suspect]
     Active Substance: OFATUMUMAB
     Route: 042
  9. CYTARABINE [Suspect]
     Active Substance: CYTARABINE
     Indication: Neoplasm malignant
     Dosage: 3 G/M2 INTRAVENOUSLY OVER 2 H EVERY 12 H...
     Route: 042
  10. CYTARABINE [Suspect]
     Active Substance: CYTARABINE
     Indication: Prophylaxis
     Route: 037
  11. DOXORUBICIN [Suspect]
     Active Substance: DOXORUBICIN
     Indication: Neoplasm malignant
     Route: 042
  12. LEUCOVORIN [Concomitant]
     Active Substance: LEUCOVORIN\LEUCOVORIN CALCIUM
     Indication: Neoplasm malignant
     Route: 042
  13. LEUCOVORIN [Concomitant]
     Active Substance: LEUCOVORIN\LEUCOVORIN CALCIUM
     Dosage: 15 MILLIGRAM, Q6H; EIGHT DOSES
     Route: 042
  14. MESNA [Concomitant]
     Active Substance: MESNA
     Indication: Neoplasm malignant
     Dosage: 600 MILLIGRAM/SQ. METER, QD; GIVEN AS A CONTINUOUS INTRAVENOUS INFUSION...
     Route: 042

REACTIONS (1)
  - Infection [Fatal]
